FAERS Safety Report 4507711-8 (Version None)
Quarter: 2004Q4

REPORT INFORMATION
  Report Type: 
  Country: None (occurrence: None)
  Receive Date: 20041118
  Receipt Date: 20041104
  Transmission Date: 20050328
  Serious: Yes (Hospitalization)
  Sender: FDA-Public Use
  Company Number: 04P-163-0266356-00

PATIENT
  Age: 61 Year
  Sex: Female
  Weight: 97.2 kg

DRUGS (14)
  1. TARKA [Suspect]
     Indication: HEART RATE INCREASED
     Dosage: 1 IN 1 D, PER ORAL
     Route: 048
     Dates: start: 20040326, end: 20040401
  2. GLYBURIDE [Concomitant]
  3. ACTOS [Concomitant]
  4. PRAVASTATIN SODIUM [Concomitant]
  5. GLIBOMET [Concomitant]
  6. SERTRALINE HYDROCHLORIDE [Concomitant]
  7. LANSOPRAZOLE [Concomitant]
  8. METOPROLOL TARTRATE [Concomitant]
  9. HYDROCHLOROTHIAZIDE [Concomitant]
  10. BISELECT [Concomitant]
  11. LISINOPRIL [Concomitant]
  12. LOTREL [Concomitant]
  13. ESTROPIPATE [Concomitant]
  14. IRON [Concomitant]

REACTIONS (42)
  - ABDOMINAL PAIN [None]
  - ALOPECIA [None]
  - ARTHRALGIA [None]
  - BLOOD GLUCOSE INCREASED [None]
  - CHILLS [None]
  - CONJUNCTIVITIS [None]
  - COUGH [None]
  - DEHYDRATION [None]
  - DELIRIUM [None]
  - DYSPHAGIA [None]
  - EAR PAIN [None]
  - EMOTIONAL DISTRESS [None]
  - ERYTHEMA [None]
  - FACE OEDEMA [None]
  - FACIAL PAIN [None]
  - FATIGUE [None]
  - HAEMORRHOIDS [None]
  - HAIR DISORDER [None]
  - HEADACHE [None]
  - HYPOTENSION [None]
  - INTESTINAL OBSTRUCTION [None]
  - LOCALISED OEDEMA [None]
  - MOBILITY DECREASED [None]
  - NASAL CONGESTION [None]
  - NASAL DRYNESS [None]
  - NAUSEA [None]
  - OEDEMA PERIPHERAL [None]
  - ORAL MUCOSAL DISORDER [None]
  - ORAL PAIN [None]
  - PAIN [None]
  - PAROTID GLAND ENLARGEMENT [None]
  - PERIORBITAL OEDEMA [None]
  - PHARYNGITIS [None]
  - PROCTALGIA [None]
  - PRURITUS [None]
  - PYREXIA [None]
  - RENAL FAILURE CHRONIC [None]
  - STEVENS-JOHNSON SYNDROME [None]
  - TACHYCARDIA [None]
  - THROAT TIGHTNESS [None]
  - VAGINITIS [None]
  - VOMITING [None]
